FAERS Safety Report 22189356 (Version 2)
Quarter: 2023Q2

REPORT INFORMATION
  Report Type: Spontaneous
  Country: RS (occurrence: RS)
  Receive Date: 20230410
  Receipt Date: 20230508
  Transmission Date: 20230721
  Serious: Yes (Other)
  Sender: FDA-Public Use
  Company Number: RS-NOVOPROD-1046270

PATIENT
  Age: 67 Year
  Sex: Male
  Weight: 85 kg

DRUGS (2)
  1. OZEMPIC [Suspect]
     Active Substance: SEMAGLUTIDE
     Indication: Type 2 diabetes mellitus
     Dosage: UNK
     Dates: start: 20210906
  2. OZEMPIC [Suspect]
     Active Substance: SEMAGLUTIDE
     Dosage: 75 IU
     Dates: start: 20230327, end: 20230327

REACTIONS (2)
  - Hypoglycaemic unconsciousness [Recovered/Resolved]
  - Counterfeit product administered [Unknown]

NARRATIVE: CASE EVENT DATE: 20230327
